FAERS Safety Report 5767296-5 (Version None)
Quarter: 2008Q2

REPORT INFORMATION
  Report Type: 
  Country: None (occurrence: None)
  Receive Date: 20080612
  Receipt Date: 20080604
  Transmission Date: 20081010
  Serious: Yes (Hospitalization)
  Sender: FDA-Public Use
  Company Number: US-ASTRAZENECA-2008UW11307

PATIENT
  Age: 36 Year
  Sex: Male

DRUGS (8)
  1. SEROQUEL XR [Suspect]
     Route: 048
  2. SEROQUEL XR [Suspect]
     Route: 048
  3. LITHIUM CARBONATE [Concomitant]
  4. CELEXA [Concomitant]
  5. BUSBAR [Concomitant]
  6. ARTANE [Concomitant]
  7. LISINOPRIL [Concomitant]
  8. CLONIDINE [Concomitant]
     Indication: BLOOD PRESSURE

REACTIONS (4)
  - ANTIPSYCHOTIC DRUG LEVEL [None]
  - DRUG SCREEN POSITIVE [None]
  - MEDICATION ERROR [None]
  - RESPIRATORY ARREST [None]
